FAERS Safety Report 9412581 (Version 1)
Quarter: 2013Q3

REPORT INFORMATION
  Report Type: Report from Study
  Country: ES (occurrence: ES)
  Receive Date: 20130722
  Receipt Date: 20130722
  Transmission Date: 20140515
  Serious: Yes (Hospitalization, Other)
  Sender: FDA-Public Use
  Company Number: ES-ROCHE-1234291

PATIENT
  Age: 58 Year
  Sex: Male
  Weight: 60 kg

DRUGS (12)
  1. GANCICLOVIR [Suspect]
     Indication: CYTOMEGALOVIRUS INFECTION
     Route: 042
     Dates: start: 20120611
  2. GANCICLOVIR [Suspect]
     Route: 042
     Dates: end: 20120626
  3. MYCOPHENOLATE MOFETIL [Suspect]
     Indication: IMMUNOSUPPRESSION
     Route: 065
  4. MYCOPHENOLATE MOFETIL [Suspect]
     Indication: PROPHYLAXIS
     Dosage: AFTER 1 MONTH OF TRANSPLANTATION
     Route: 065
  5. MYCOPHENOLATE MOFETIL [Suspect]
     Route: 048
     Dates: start: 20120207
  6. VALGANCICLOVIR [Suspect]
     Indication: CYTOMEGALOVIRUS INFECTION
     Route: 048
     Dates: start: 20120212, end: 20130520
  7. VALGANCICLOVIR [Suspect]
     Route: 048
  8. OMEPRAZOL [Concomitant]
     Indication: PROPHYLAXIS
     Route: 048
     Dates: start: 20120213
  9. TACROLIMUS [Concomitant]
     Indication: IMMUNOSUPPRESSION
     Route: 065
  10. TACROLIMUS [Concomitant]
     Indication: PROPHYLAXIS AGAINST TRANSPLANT REJECTION
     Route: 048
     Dates: start: 20120213
  11. BASILIXIMAB [Concomitant]
     Indication: IMMUNOSUPPRESSION
     Route: 065
  12. PREDNISONE [Concomitant]
     Indication: PROPHYLAXIS AGAINST TRANSPLANT REJECTION
     Route: 048
     Dates: start: 20120212

REACTIONS (2)
  - Cytomegalovirus infection [Recovered/Resolved]
  - Drug resistance [Unknown]
